FAERS Safety Report 7249556-4 (Version None)
Quarter: 2011Q1

REPORT INFORMATION
  Report Type: 
  Country: None (occurrence: None)
  Receive Date: 20110128
  Receipt Date: 20101213
  Transmission Date: 20110831
  Serious: Yes (Death, Life-Threatening, Hospitalization, Other)
  Sender: FDA-Public Use
  Company Number: JP-BAYER-201014818BYL

PATIENT
  Sex: Male
  Weight: 56 kg

DRUGS (3)
  1. SUMIFERON [Concomitant]
     Dosage: 3 MIU, TIW
     Route: 058
     Dates: start: 20091102
  2. PROMAC [POLAPREZINC] [Concomitant]
     Indication: PROPHYLAXIS
     Dosage: 1 G (DAILY DOSE), , ORAL
     Route: 048
     Dates: start: 20100910, end: 20100927
  3. NEXAVAR [Suspect]
     Indication: RENAL CELL CARCINOMA
     Dosage: 400 MG, BID
     Route: 048
     Dates: start: 20100910, end: 20100923

REACTIONS (12)
  - PLATELET COUNT DECREASED [None]
  - WHITE BLOOD CELL COUNT DECREASED [None]
  - ILEUS PARALYTIC [None]
  - HYPOAESTHESIA [None]
  - SEPSIS [None]
  - STOMATITIS [None]
  - DYSPHONIA [None]
  - ERYTHEMA MULTIFORME [None]
  - SUBARACHNOID HAEMORRHAGE [None]
  - HEPATIC FUNCTION ABNORMAL [None]
  - MALAISE [None]
  - APHAGIA [None]
